FAERS Safety Report 7377862-1 (Version None)
Quarter: 2011Q1

REPORT INFORMATION
  Report Type: 
  Country: None (occurrence: None)
  Receive Date: 20110328
  Receipt Date: 20110315
  Transmission Date: 20110831
  Serious: Yes (Hospitalization)
  Sender: FDA-Public Use
  Company Number: CH-NOVOPROD-325095

PATIENT
  Age: 82 Year
  Sex: Male

DRUGS (8)
  1. FELODIPINE W/METOPROLOL [Concomitant]
     Dosage: 5/50MG, 1 PER DAY
  2. REPAGLINIDE [Concomitant]
     Dosage: 4 MG, TID
  3. SIMVASTATIN [Concomitant]
     Dosage: 40 MG, QD
  4. METFORMIN HYDROCHLORIDE W/PIOGLITAZONE HYDROC [Concomitant]
     Dosage: 850/15MG, 2 PER DAY
  5. NOVOMIX 30 [Suspect]
     Indication: TYPE 2 DIABETES MELLITUS
     Dosage: UNK
     Route: 058
     Dates: start: 20100226
  6. CANDESARTAN [Concomitant]
     Dosage: 16 MG, QD
  7. ISOSORBIDE DINITRATE [Concomitant]
     Dosage: 40 MG, QD
  8. ASPIRIN [Concomitant]
     Dosage: 100 MG, QD

REACTIONS (3)
  - DRUG ADMINISTRATION ERROR [None]
  - POSTICTAL PARALYSIS [None]
  - HYPOGLYCAEMIC SEIZURE [None]
